FAERS Safety Report 6724409-6 (Version None)
Quarter: 2010Q2

REPORT INFORMATION
  Report Type: 
  Country: None (occurrence: None)
  Receive Date: 20100513
  Receipt Date: 20100504
  Transmission Date: 20101027
  Serious: Yes (Other)
  Sender: FDA-Public Use
  Company Number: US-PFIZER INC-2010056844

PATIENT
  Sex: Female
  Weight: 63.4 kg

DRUGS (2)
  1. NEURONTIN [Suspect]
     Indication: MIGRAINE
     Dosage: 300 MG, 1X/DAY
     Route: 048
     Dates: start: 19980101
  2. NEURONTIN [Suspect]
     Indication: HEADACHE

REACTIONS (3)
  - ACTIVITIES OF DAILY LIVING IMPAIRED [None]
  - CONVULSION [None]
  - MALAISE [None]
